FAERS Safety Report 11669421 (Version 1)
Quarter: 2015Q4

REPORT INFORMATION
  Report Type: Spontaneous
  Country: US (occurrence: US)
  Receive Date: 20151027
  Receipt Date: 20151027
  Transmission Date: 20160304
  Serious: No
  Sender: FDA-Public Use
  Company Number: US-ELI_LILLY_AND_COMPANY-US201004003202

PATIENT
  Age: 54 Year
  Sex: Female

DRUGS (8)
  1. FEMRING [Concomitant]
     Active Substance: ESTRADIOL ACETATE
     Dosage: 1 D/F, DAILY (1/D)
  2. CELLCEPT [Concomitant]
     Active Substance: MYCOPHENOLATE MOFETIL\MYCOPHENOLATE MOFETIL HYDROCHLORIDE
     Dosage: 1 D/F, DAILY (1/D)
  3. PREDNISONE. [Concomitant]
     Active Substance: PREDNISONE
     Dosage: 2 MG, DAILY (1/D)
  4. ESTROGEN NOS [Concomitant]
     Active Substance: ESTROGENS
     Dosage: 1 D/F, DAILY (1/D)
  5. NUVARING [Concomitant]
     Active Substance: ETHINYL ESTRADIOL\ETONOGESTREL
     Dosage: 1 D/F, DAILY (1/D)
  6. SYNTHROID [Concomitant]
     Active Substance: LEVOTHYROXINE SODIUM
     Dosage: 0.88 MG, DAILY (1/D)
  7. ZOMIG [Concomitant]
     Active Substance: ZOLMITRIPTAN
     Dosage: 1 D/F, AS NEEDED
  8. FORTEO [Suspect]
     Active Substance: TERIPARATIDE
     Indication: OSTEOPOROSIS
     Dosage: 20 UG, DAILY (1/D)
     Dates: start: 201001

REACTIONS (5)
  - Meniscus operation [Unknown]
  - Malaise [Unknown]
  - Night sweats [Recovered/Resolved]
  - Dizziness [Recovered/Resolved]
  - Injection site bruising [Not Recovered/Not Resolved]

NARRATIVE: CASE EVENT DATE: 2010
